FAERS Safety Report 5570789-7 (Version None)
Quarter: 2007Q4

REPORT INFORMATION
  Report Type: 
  Country: None (occurrence: None)
  Receive Date: 20071221
  Receipt Date: 20071211
  Transmission Date: 20080405
  Serious: Yes (Hospitalization)
  Sender: FDA-Public Use
  Company Number: US-ELI_LILLY_AND_COMPANY-US200711004958

PATIENT
  Sex: Female

DRUGS (9)
  1. FORTEO [Suspect]
     Indication: OSTEOPOROSIS
     Dosage: 20 UG, DAILY (1/D)
     Dates: start: 20061025
  2. FORTEO [Suspect]
     Dosage: UNK, UNK
     Dates: start: 20070201, end: 20070801
  3. CALCIUM [Concomitant]
     Indication: OSTEOPOROSIS
  4. PLAQUENIL [Concomitant]
  5. MEDROL [Concomitant]
  6. TOPROL-XL [Concomitant]
  7. PREVACID [Concomitant]
  8. PLAVIX [Concomitant]
  9. NAMENDA [Concomitant]

REACTIONS (2)
  - FEELING ABNORMAL [None]
  - SMALL INTESTINAL OBSTRUCTION [None]
